FAERS Safety Report 8471843 (Version 2)
Quarter: 2013Q1

REPORT INFORMATION
  Report Type: Spontaneous
  Country: US (occurrence: US)
  Receive Date: 20120322
  Receipt Date: 20130322
  Transmission Date: 20140127
  Serious: Yes (Death, Other)
  Sender: FDA-Public Use
  Company Number: US-BRISTOL-MYERS SQUIBB COMPANY-16354995

PATIENT
  Age: 79 Year
  Sex: Male
  Weight: 69 kg

DRUGS (2)
  1. ERBITUX [Suspect]
     Indication: HEAD AND NECK CANCER
     Dosage: 764 MG LOADING DOSE OVER 2 HRS,1 TREATMENT,IV VIA PORT
     Route: 042
     Dates: start: 20111118
  2. RITUXIMAB [Concomitant]
     Dates: start: 20111118

REACTIONS (2)
  - Death [Fatal]
  - Pain [Unknown]
